FAERS Safety Report 8332900-4 (Version None)
Quarter: 2012Q2

REPORT INFORMATION
  Report Type: 
  Country: None (occurrence: None)
  Receive Date: 20120503
  Receipt Date: 20120501
  Transmission Date: 20120825
  Serious: Yes (Other)
  Sender: FDA-Public Use
  Company Number: IL-AMGEN-ISRSP2012027222

PATIENT
  Age: 69 Year
  Weight: 50 kg

DRUGS (7)
  1. LANTON [Concomitant]
  2. NPLATE [Suspect]
     Indication: IDIOPATHIC THROMBOCYTOPENIC PURPURA
     Dosage: 8 MUG/KG, UNK
     Dates: start: 20110915, end: 20120403
  3. LORIVAN [Concomitant]
  4. VABEN [Concomitant]
  5. OMEPRA [Concomitant]
  6. BONDORMIN [Concomitant]
  7. ALPROX [Concomitant]

REACTIONS (1)
  - HAEMOGLOBIN DECREASED [None]
